FAERS Safety Report 7023675-X (Version None)
Quarter: 2010Q3

REPORT INFORMATION
  Report Type: 
  Country: None (occurrence: None)
  Receive Date: 20100929
  Receipt Date: 20100929
  Transmission Date: 20110219
  Serious: No
  Sender: FDA-Public Use
  Company Number: None

PATIENT
  Age: 62 Year
  Sex: Male
  Weight: 60 kg

DRUGS (2)
  1. CARBOPLATIN [Suspect]
     Dosage: 570 MG ONCE IV
     Route: 042
     Dates: start: 20100218, end: 20100218
  2. PACLITAXEL [Suspect]
     Dosage: 352 MG ONCE IV
     Route: 042
     Dates: start: 20100218, end: 20100218

REACTIONS (2)
  - INFUSION SITE ERYTHEMA [None]
  - INFUSION SITE IRRITATION [None]
